FAERS Safety Report 18008649 (Version 1)
Quarter: 2020Q3

REPORT INFORMATION
  Report Type: Spontaneous
  Country: BR (occurrence: BR)
  Receive Date: 20200710
  Receipt Date: 20200710
  Transmission Date: 20201103
  Serious: Yes (Other)
  Sender: FDA-Public Use
  Company Number: BR-ROCHE-2637752

PATIENT
  Sex: Female

DRUGS (4)
  1. CALTREN [Concomitant]
     Active Substance: NITRENDIPINE
  2. LOSARTAN. [Concomitant]
     Active Substance: LOSARTAN
  3. RIVOTRIL [Suspect]
     Active Substance: CLONAZEPAM
     Indication: ANXIETY
     Route: 065
  4. RIVOTRIL [Suspect]
     Active Substance: CLONAZEPAM
     Indication: INSOMNIA

REACTIONS (25)
  - Fatigue [Unknown]
  - Decreased appetite [Unknown]
  - Headache [Unknown]
  - Arthralgia [Unknown]
  - Dyspnoea [Unknown]
  - Sleep disorder [Unknown]
  - Urinary incontinence [Unknown]
  - Burning sensation [Unknown]
  - Paraesthesia [Unknown]
  - Urticaria [Unknown]
  - Micturition disorder [Unknown]
  - Alopecia [Unknown]
  - Deafness [Not Recovered/Not Resolved]
  - Memory impairment [Unknown]
  - Constipation [Unknown]
  - Neuropathy peripheral [Unknown]
  - Intentional product use issue [Unknown]
  - Dry skin [Unknown]
  - Insomnia [Unknown]
  - Spinal pain [Unknown]
  - Rash pruritic [Unknown]
  - Myalgia [Unknown]
  - Visual impairment [Unknown]
  - Amnesia [Unknown]
  - Off label use [Unknown]
